FAERS Safety Report 22088419 (Version 1)
Quarter: 2023Q1

REPORT INFORMATION
  Report Type: Report from Study
  Country: JP (occurrence: JP)
  Receive Date: 20230313
  Receipt Date: 20230313
  Transmission Date: 20230417
  Serious: Yes (Death)
  Sender: FDA-Public Use
  Company Number: JP-SERVIER-S22013123

PATIENT
  Age: 79 Year
  Sex: Male

DRUGS (16)
  1. ONIVYDE [Suspect]
     Active Substance: IRINOTECAN HYDROCHLORIDE
     Indication: Pancreatic carcinoma metastatic
     Dosage: 60 MG/M2
     Route: 042
     Dates: start: 20210603, end: 20210603
  2. ONIVYDE [Suspect]
     Active Substance: IRINOTECAN HYDROCHLORIDE
     Dosage: 60 MG/M2
     Route: 042
     Dates: start: 20210621, end: 20210621
  3. ONIVYDE [Suspect]
     Active Substance: IRINOTECAN HYDROCHLORIDE
     Dosage: 60 MG/M2
     Route: 042
     Dates: start: 20210706, end: 2021
  4. ONIVYDE [Suspect]
     Active Substance: IRINOTECAN HYDROCHLORIDE
     Dosage: 60 MG/M2
     Route: 042
     Dates: start: 20210802, end: 2021
  5. ONIVYDE [Suspect]
     Active Substance: IRINOTECAN HYDROCHLORIDE
     Dosage: 83 MG/BODY
     Route: 042
     Dates: start: 20211012
  6. GIMERACIL\OTERACIL\TEGAFUR [Concomitant]
     Active Substance: GIMERACIL\OTERACIL\TEGAFUR
     Indication: Pancreatic carcinoma metastatic
     Dosage: 50 MG, BID
     Route: 048
     Dates: start: 20210603, end: 2021
  7. GIMERACIL\OTERACIL\TEGAFUR [Concomitant]
     Active Substance: GIMERACIL\OTERACIL\TEGAFUR
     Dosage: 40 MG, BID
     Route: 048
     Dates: start: 20210706, end: 2021
  8. GIMERACIL\OTERACIL\TEGAFUR [Concomitant]
     Active Substance: GIMERACIL\OTERACIL\TEGAFUR
     Dosage: 80 MG/BODY
     Route: 048
     Dates: start: 20210802, end: 2021
  9. GIMERACIL\OTERACIL\TEGAFUR [Concomitant]
     Active Substance: GIMERACIL\OTERACIL\TEGAFUR
     Dosage: 60 MG/BODY
     Route: 048
     Dates: start: 20211012
  10. OLMESARTAN MEDOXOMIL [Concomitant]
     Active Substance: OLMESARTAN MEDOXOMIL
     Dosage: 10 MG, BID
     Route: 048
     Dates: start: 2017
  11. ZETIA [Concomitant]
     Active Substance: EZETIMIBE
     Indication: Dyslipidaemia
     Dosage: 10 MG, BID
     Route: 048
  12. VILDAGLIPTIN [Concomitant]
     Active Substance: VILDAGLIPTIN
     Indication: Diabetes mellitus
     Dosage: 50 MG, BID
     Route: 048
     Dates: start: 2017
  13. METGLUCO [Concomitant]
     Active Substance: METFORMIN HYDROCHLORIDE
     Indication: Diabetes mellitus
     Dosage: 500 MG, BID
     Route: 048
     Dates: start: 2017
  14. CHLORPROMAZINE [Concomitant]
     Active Substance: CHLORPROMAZINE
     Indication: Hiccups
     Dosage: UNK, AS REQ^D
     Route: 048
     Dates: start: 20210610
  15. MAGNESIUM OXIDE [Concomitant]
     Active Substance: MAGNESIUM OXIDE
     Indication: Constipation
     Dosage: 660 MG, TID
     Route: 048
     Dates: start: 20210611
  16. SILODOSIN [Concomitant]
     Active Substance: SILODOSIN
     Indication: Benign prostatic hyperplasia
     Dosage: 4 MG, BID
     Route: 048
     Dates: start: 20210614

REACTIONS (1)
  - Malignant neoplasm progression [Fatal]

NARRATIVE: CASE EVENT DATE: 20220627
